FAERS Safety Report 14715628 (Version 1)
Quarter: 2018Q2

REPORT INFORMATION
  Report Type: Report from Study
  Country: US (occurrence: US)
  Receive Date: 20180404
  Receipt Date: 20180404
  Transmission Date: 20180711
  Serious: Yes (Hospitalization, Other)
  Sender: FDA-Public Use
  Company Number: US-ASTRAZENECA-2017SF17220

PATIENT
  Age: 16355 Day
  Sex: Female
  Weight: 56.2 kg

DRUGS (8)
  1. LYNPARZA [Suspect]
     Active Substance: OLAPARIB
     Indication: BREAST CANCER FEMALE
     Route: 048
     Dates: start: 20171024
  2. LYNPARZA [Suspect]
     Active Substance: OLAPARIB
     Indication: BREAST CANCER FEMALE
     Route: 048
     Dates: end: 20180223
  3. ADRIAMYCIN [Concomitant]
     Active Substance: DOXORUBICIN HYDROCHLORIDE
     Dates: end: 20171007
  4. PACLITAXEL. [Concomitant]
     Active Substance: PACLITAXEL
     Dates: end: 20171007
  5. CARBOPLATIN. [Concomitant]
     Active Substance: CARBOPLATIN
     Dates: start: 20170421, end: 20170929
  6. LYNPARZA [Suspect]
     Active Substance: OLAPARIB
     Indication: BREAST CANCER FEMALE
     Route: 048
     Dates: start: 20171211, end: 20171221
  7. XGEVA [Concomitant]
     Active Substance: DENOSUMAB
     Dates: start: 20170623
  8. GEMCITABINE [Concomitant]
     Active Substance: GEMCITABINE\GEMCITABINE HYDROCHLORIDE
     Dates: start: 20170421, end: 20170929

REACTIONS (15)
  - Haemoptysis [Recovered/Resolved]
  - Metastasis [Unknown]
  - Product use in unapproved indication [Unknown]
  - Drug ineffective [Not Recovered/Not Resolved]
  - Metastases to lung [Not Recovered/Not Resolved]
  - Metastases to liver [Not Recovered/Not Resolved]
  - Hyperchlorhydria [Unknown]
  - Malignant neoplasm progression [Unknown]
  - Cough [Unknown]
  - Anaemia [Recovered/Resolved]
  - Dyspnoea [Unknown]
  - Anaemia postoperative [Recovered/Resolved]
  - Off label use [Unknown]
  - Hypotension [Unknown]
  - Metastases to bone [Unknown]

NARRATIVE: CASE EVENT DATE: 20171024
